FAERS Safety Report 7204794-1 (Version None)
Quarter: 2010Q4

REPORT INFORMATION
  Report Type: 
  Country: None (occurrence: None)
  Receive Date: 20101217
  Receipt Date: 20101203
  Transmission Date: 20110411
  Serious: Yes (Hospitalization)
  Sender: FDA-Public Use
  Company Number: 2010S1001033

PATIENT
  Age: 51 Year
  Sex: Female

DRUGS (3)
  1. LIVALO [Suspect]
     Indication: HYPERLIPIDAEMIA
     Dosage: 2 MG;1X;PO
     Route: 048
     Dates: start: 20100713
  2. ASPIRIN [Concomitant]
  3. EPROSARTAN MESILATE [Concomitant]

REACTIONS (3)
  - CORONARY ARTERY OCCLUSION [None]
  - DIZZINESS [None]
  - HEADACHE [None]
